FAERS Safety Report 15499957 (Version 1)
Quarter: 2018Q4

REPORT INFORMATION
  Report Type: Spontaneous
  Country: US (occurrence: US)
  Receive Date: 20181015
  Receipt Date: 20181015
  Transmission Date: 20190205
  Serious: Yes (Other)
  Sender: FDA-Public Use
  Company Number: US-BAYER-2018-189237

PATIENT
  Sex: Male

DRUGS (10)
  1. SPIRONOLACTONE. [Concomitant]
     Active Substance: SPIRONOLACTONE
     Indication: HYPERALDOSTERONISM
     Dosage: 25 MG, TID
     Dates: start: 20180725, end: 2018
  2. DR. SCHOLLS CLEAR AWAY WART REMOVER [Suspect]
     Active Substance: SALICYLIC ACID
  3. EPLERENONE. [Concomitant]
     Active Substance: EPLERENONE
     Dosage: 50 MG, UNK
     Dates: start: 20180803, end: 2018
  4. ALTACE [Concomitant]
     Active Substance: RAMIPRIL
     Dosage: 2.5 MG, UNK
     Dates: start: 1988
  5. NEXIUM [Concomitant]
     Active Substance: ESOMEPRAZOLE MAGNESIUM
     Dosage: 40 MG, UNK
     Dates: start: 1988
  6. ASPIRIN. [Concomitant]
     Active Substance: ASPIRIN
     Dosage: UNK
  7. INSPRA [Concomitant]
     Active Substance: EPLERENONE
     Dosage: 50 MG, UNK
     Dates: start: 20180816, end: 2018
  8. BUFFERIN [Concomitant]
     Active Substance: ASPIRIN
     Dosage: UNK
  9. BAYER ASPIRIN [Suspect]
     Active Substance: ASPIRIN
     Dosage: UNK
  10. CLARITIN [Suspect]
     Active Substance: LORATADINE
     Dosage: UNK

REACTIONS (5)
  - Gastric pH decreased [Unknown]
  - Abdominal pain upper [Unknown]
  - Oesophageal stenosis [Unknown]
  - Drug hypersensitivity [Unknown]
  - Dizziness [Unknown]
